FAERS Safety Report 5021823-4 (Version None)
Quarter: 2006Q2

REPORT INFORMATION
  Report Type: 
  Country: None (occurrence: None)
  Receive Date: 20060609
  Receipt Date: 20060531
  Transmission Date: 20061013
  Serious: Yes (Hospitalization)
  Sender: FDA-Public Use
  Company Number: US-JNJFOC-20060600569

PATIENT
  Sex: Female
  Weight: 74.84 kg

DRUGS (3)
  1. REMICADE [Suspect]
     Indication: CROHN'S DISEASE
     Route: 042
  2. 6-MP [Concomitant]
  3. JUICE PLUS [Concomitant]
     Indication: MEDICAL DIET
     Route: 048

REACTIONS (2)
  - BENIGN OVARIAN TUMOUR [None]
  - INTESTINAL OBSTRUCTION [None]
